FAERS Safety Report 4302736-X (Version None)
Quarter: 2004Q1

REPORT INFORMATION
  Report Type: 
  Country: None (occurrence: None)
  Receive Date: 20040126
  Receipt Date: 20031014
  Transmission Date: 20041129
  Serious: No
  Sender: FDA-Public Use
  Company Number: USA031049897

PATIENT
  Age: 33 Year
  Sex: Male

DRUGS (3)
  1. STRATTERA [Suspect]
     Dosage: 100 MG/IN THE MORNING
     Dates: start: 20030901
  2. RITALIN [Concomitant]
  3. RISPERDAL [Concomitant]

REACTIONS (1)
  - EJACULATION DISORDER [None]
